FAERS Safety Report 9342050 (Version 2)
Quarter: 2013Q2

REPORT INFORMATION
  Report Type: Spontaneous
  Country: US (occurrence: US)
  Receive Date: 20130611
  Receipt Date: 20130618
  Transmission Date: 20140414
  Serious: Yes (Other)
  Sender: FDA-Public Use
  Company Number: US-BAYER-2013-069975

PATIENT
  Age: 56 Year
  Sex: Female
  Weight: 68.03 kg

DRUGS (2)
  1. CLIMARA PRO [Suspect]
     Indication: HOT FLUSH
     Dosage: UNK
     Route: 062
     Dates: start: 201304, end: 201305
  2. CLIMARA PRO [Suspect]
     Indication: HOT FLUSH
     Dosage: UNK
     Route: 062
     Dates: start: 2013

REACTIONS (5)
  - Genital haemorrhage [None]
  - Genital haemorrhage [None]
  - Weight decreased [None]
  - Product adhesion issue [None]
  - Product adhesion issue [None]
